FAERS Safety Report 4674772-5 (Version None)
Quarter: 2005Q2

REPORT INFORMATION
  Report Type: 
  Country: None (occurrence: None)
  Receive Date: 20050526
  Receipt Date: 20050513
  Transmission Date: 20051028
  Serious: Yes (Hospitalization)
  Sender: FDA-Public Use
  Company Number: 2005UW07490

PATIENT
  Age: 30 Year
  Sex: Female

DRUGS (3)
  1. SEROQUEL [Suspect]
     Dosage: TITRATION 100-600 MG
     Route: 048
  2. SEROQUEL [Suspect]
     Dosage: TITRATION 100-600 MG
     Route: 048
  3. EFFEXOR [Concomitant]

REACTIONS (2)
  - MANIA [None]
  - SUICIDAL IDEATION [None]
